FAERS Safety Report 12194100 (Version 2)
Quarter: 2016Q2

REPORT INFORMATION
  Report Type: Spontaneous
  Country: FR (occurrence: FR)
  Receive Date: 20160321
  Receipt Date: 20160608
  Transmission Date: 20160815
  Serious: Yes (Hospitalization)
  Sender: FDA-Public Use
  Company Number: FR-ROCHE-1728987

PATIENT
  Age: 53 Year
  Sex: Male

DRUGS (6)
  1. PEMBROLIZUMAB. [Concomitant]
     Active Substance: PEMBROLIZUMAB
     Route: 065
     Dates: start: 201502
  2. NIVOLUMAB [Concomitant]
     Active Substance: NIVOLUMAB
     Route: 065
     Dates: start: 20160510
  3. IPILIMUMAB [Concomitant]
     Active Substance: IPILIMUMAB
     Route: 065
     Dates: start: 201409
  4. ZELBORAF [Suspect]
     Active Substance: VEMURAFENIB
     Indication: METASTATIC MALIGNANT MELANOMA
     Dosage: 240 MG
     Route: 048
     Dates: start: 201303, end: 201409
  5. DETICENE [Concomitant]
     Active Substance: DACARBAZINE
     Route: 065
     Dates: start: 201508
  6. DETICENE [Concomitant]
     Active Substance: DACARBAZINE
     Dosage: 10TH COURSE
     Route: 065
     Dates: start: 20160415

REACTIONS (1)
  - Portal hypertension [Not Recovered/Not Resolved]

NARRATIVE: CASE EVENT DATE: 201406
